FAERS Safety Report 10226639 (Version 3)
Quarter: 2014Q3

REPORT INFORMATION
  Report Type: Report from Study
  Country: BR (occurrence: BR)
  Receive Date: 20140609
  Receipt Date: 20140707
  Transmission Date: 20150326
  Serious: Yes (Life-Threatening, Hospitalization, Other)
  Sender: FDA-Public Use
  Company Number: PHHY2014BR056848

PATIENT
  Age: 87 Year
  Sex: Female
  Weight: 45 kg

DRUGS (3)
  1. DIOVAN HCT [Suspect]
     Active Substance: HYDROCHLOROTHIAZIDE\VALSARTAN
     Indication: HYPERTENSION
     Dosage: 1 DF, (80 MG VALS AND 12.5 MH HYDR) DAILY
     Route: 048
     Dates: end: 20140220
  2. HIXIZINE [Concomitant]
     Active Substance: HYDROXYZINE HYDROCHLORIDE
     Indication: HYPERSENSITIVITY
     Dosage: 1 DF, (25 MG) DAILY
     Route: 048
  3. DIOVAN HCT [Suspect]
     Active Substance: HYDROCHLOROTHIAZIDE\VALSARTAN
     Dosage: 1 DF, (80 MG VALS AND 12.5 MH HYDR) DAILY
     Route: 048

REACTIONS (6)
  - Apparent death [Unknown]
  - Weight decreased [Recovering/Resolving]
  - Gastrointestinal infection [Recovered/Resolved]
  - Diarrhoea [Recovering/Resolving]
  - Blood pressure decreased [Recovered/Resolved]
  - Venous occlusion [Recovering/Resolving]

NARRATIVE: CASE EVENT DATE: 201209
